FAERS Safety Report 23337184 (Version 1)
Quarter: 2023Q4

REPORT INFORMATION
  Report Type: Other
  Country: US (occurrence: None)
  Receive Date: 20231226
  Receipt Date: 20231226
  Transmission Date: 20240109
  Serious: Yes (Hospitalization, Other)
  Sender: FDA-Public Use
  Company Number: US-ROCHE-3476740

PATIENT
  Age: 52 Year
  Sex: Male
  Weight: 89.438 kg

DRUGS (1)
  1. OCREVUS [Suspect]
     Active Substance: OCRELIZUMAB
     Indication: Relapsing multiple sclerosis
     Dosage: ONGOING YES
     Route: 042
     Dates: start: 2023

REACTIONS (8)
  - Peripheral swelling [Not Recovered/Not Resolved]
  - Pain in extremity [Not Recovered/Not Resolved]
  - Fall [Unknown]
  - Thrombosis [Recovered/Resolved]
  - Pneumonia [Recovered/Resolved]
  - Eye pruritus [Recovered/Resolved]
  - Off label use [Unknown]
  - Multiple sclerosis [Unknown]

NARRATIVE: CASE EVENT DATE: 20230101
